FAERS Safety Report 4743599-8 (Version None)
Quarter: 2005Q3

REPORT INFORMATION
  Report Type: 
  Country: None (occurrence: None)
  Receive Date: 20050812
  Receipt Date: 20050726
  Transmission Date: 20060218
  Serious: Yes (Hospitalization)
  Sender: FDA-Public Use
  Company Number: PHFR2005GB02592

PATIENT
  Age: 29 Year
  Sex: Female
  Weight: 85 kg

DRUGS (7)
  1. ELIDEL [Suspect]
     Indication: ECZEMA
     Dosage: UNK, BID
     Route: 061
     Dates: start: 20020101
  2. HYDROUS MAGNESIUM SILICATE [Concomitant]
     Indication: ECZEMA
     Route: 061
     Dates: start: 19910101
  3. E45 [Concomitant]
     Indication: ECZEMA
     Route: 061
     Dates: start: 19980101
  4. TERBUTALINE [Concomitant]
     Indication: ASTHMA
     Dosage: PRN
     Dates: start: 20020101
  5. SYMBICORT TURBUHALER ^DRACO^ [Concomitant]
     Indication: ASTHMA
     Dosage: 2 PUFFS BID
     Dates: start: 20020101
  6. DEPO-PROVERA [Concomitant]
     Indication: CONTRACEPTION
     Route: 030
     Dates: start: 20000101
  7. CHLORPHENAMINE [Concomitant]
     Indication: PRURITUS
     Dosage: 4MG QID PRN
     Route: 048

REACTIONS (2)
  - HYPERCALCAEMIA [None]
  - SARCOIDOSIS [None]
